FAERS Safety Report 6994637-3 (Version None)
Quarter: 2010Q3

REPORT INFORMATION
  Report Type: 
  Country: None (occurrence: None)
  Receive Date: 20100915
  Receipt Date: 20100915
  Transmission Date: 20110219
  Serious: Yes (Hospitalization)
  Sender: FDA-Public Use
  Company Number: None

PATIENT

DRUGS (2)
  1. AVASTIN [Suspect]
     Indication: MACULAR DEGENERATION
     Dosage: INTRAOCULAR
     Dates: start: 20100906, end: 20100906
  2. AVASTIN [Suspect]
     Indication: MACULAR DEGENERATION
     Dosage: INTRAOCULAR
     Dates: start: 20100908, end: 20100908

REACTIONS (5)
  - EYE DISORDER [None]
  - EYE PAIN [None]
  - EYE SWELLING [None]
  - OCULAR HYPERAEMIA [None]
  - VISION BLURRED [None]
